FAERS Safety Report 11330542 (Version 1)
Quarter: 2015Q3

REPORT INFORMATION
  Report Type: Spontaneous
  Country: US (occurrence: US)
  Receive Date: 20150803
  Receipt Date: 20150803
  Transmission Date: 20151125
  Serious: No
  Sender: FDA-Public Use
  Company Number: US-TAKEDA-2015TUS001474

PATIENT
  Age: 59 Year
  Sex: Male
  Weight: 104.31 kg

DRUGS (4)
  1. PREDNISONE. [Concomitant]
     Active Substance: PREDNISONE
     Indication: GOUT
     Dosage: UNK, PRN
     Route: 048
     Dates: start: 20150203
  2. COLCRYS [Suspect]
     Active Substance: COLCHICINE
     Indication: GOUT
     Dosage: 1 TABLET, BID
     Route: 048
     Dates: start: 201411, end: 201501
  3. MULTIVITAMIN                       /00097801/ [Concomitant]
     Active Substance: VITAMINS
     Dosage: UNK
     Route: 048
  4. COLCRYS [Suspect]
     Active Substance: COLCHICINE
     Dosage: 1 TABLET, QD
     Route: 048
     Dates: start: 201501

REACTIONS (3)
  - Erythema [Not Recovered/Not Resolved]
  - Swelling [Not Recovered/Not Resolved]
  - Drug ineffective [Not Recovered/Not Resolved]
